FAERS Safety Report 4690865-0 (Version None)
Quarter: 2005Q2

REPORT INFORMATION
  Report Type: 
  Country: None (occurrence: None)
  Receive Date: 20050614
  Receipt Date: 20050603
  Transmission Date: 20051028
  Serious: Yes (Other)
  Sender: FDA-Public Use
  Company Number: 2005082456

PATIENT
  Sex: Male

DRUGS (1)
  1. DRAMAMINE [Suspect]
     Dosage: 8 TABS ONCE, ORAL
     Route: 048
     Dates: start: 20050603, end: 20050603

REACTIONS (2)
  - HALLUCINATION [None]
  - PSYCHOMOTOR HYPERACTIVITY [None]
